FAERS Safety Report 14628304 (Version 1)
Quarter: 2018Q1

REPORT INFORMATION
  Report Type: Spontaneous
  Country: US (occurrence: US)
  Receive Date: 20180312
  Receipt Date: 20180312
  Transmission Date: 20180509
  Serious: No
  Sender: FDA-Public Use
  Company Number: US-ALLERGAN-1751209US

PATIENT
  Age: 72 Year
  Sex: Female

DRUGS (1)
  1. ESTRACE [Suspect]
     Active Substance: ESTRADIOL
     Indication: URETHRAL DISORDER
     Dosage: 1 PEA SIZE DOT
     Route: 061
     Dates: start: 20170904

REACTIONS (4)
  - Dysuria [Recovering/Resolving]
  - Off label use [Unknown]
  - Incorrect route of drug administration [Unknown]
  - Drug ineffective [Unknown]

NARRATIVE: CASE EVENT DATE: 20170904
